FAERS Safety Report 15821060 (Version 1)
Quarter: 2019Q1

REPORT INFORMATION
  Report Type: Spontaneous
  Country: US (occurrence: US)
  Receive Date: 20190114
  Receipt Date: 20190114
  Transmission Date: 20190417
  Serious: Yes (Other)
  Sender: FDA-Public Use
  Company Number: US-GLAXOSMITHKLINE-US2019000875

PATIENT
  Sex: Female

DRUGS (5)
  1. PROAIR HFA [Suspect]
     Active Substance: ALBUTEROL SULFATE
     Indication: EMPHYSEMA
     Dosage: UNK
     Route: 055
     Dates: end: 2014
  2. ALBUTEROL. [Suspect]
     Active Substance: ALBUTEROL
     Indication: EMPHYSEMA
     Dosage: UNK
  3. VENTOLIN HFA [Suspect]
     Active Substance: ALBUTEROL SULFATE
     Indication: EMPHYSEMA
     Dosage: 2 PUFF(S), QID
     Route: 055
  4. ANORO ELLIPTA [Suspect]
     Active Substance: UMECLIDINIUM BROMIDE\VILANTEROL TRIFENATATE
     Indication: EMPHYSEMA
     Dosage: 1 PUFF(S), 1D
     Route: 055
     Dates: start: 201707
  5. VENTOLIN HFA [Suspect]
     Active Substance: ALBUTEROL SULFATE
     Dosage: 1 PUFF(S), 1D
     Route: 055

REACTIONS (5)
  - Nervousness [Not Recovered/Not Resolved]
  - Tremor [Not Recovered/Not Resolved]
  - Pneumonia [Unknown]
  - Intentional underdose [Not Recovered/Not Resolved]
  - Intentional product use issue [Not Recovered/Not Resolved]
